FAERS Safety Report 14874495 (Version 3)
Quarter: 2018Q3

REPORT INFORMATION
  Report Type: Report from Study
  Country: NZ (occurrence: NZ)
  Receive Date: 20180510
  Receipt Date: 20180723
  Transmission Date: 20181010
  Serious: Yes (Death, Other)
  Sender: FDA-Public Use
  Company Number: NZ-MYLANLABS-2018M1031452

PATIENT
  Age: 68 Year
  Sex: Female

DRUGS (18)
  1. CLOZARIL [Suspect]
     Active Substance: CLOZAPINE
     Indication: SCHIZOPHRENIA
     Dosage: 3 DF, TID
     Route: 048
     Dates: start: 20160809, end: 20180503
  2. DOCUSATE SODIUM + SENNA [Suspect]
     Active Substance: DOCUSATE SODIUM\SENNOSIDE A\SENNOSIDE B
     Indication: CONSTIPATION
     Dosage: UNK, BID
     Route: 048
     Dates: start: 201608, end: 20180503
  3. ENTACAPONE. [Suspect]
     Active Substance: ENTACAPONE
     Indication: PARKINSON^S DISEASE
     Dosage: 200 MG, QID
     Route: 048
     Dates: start: 20130611, end: 20180505
  4. SERTRALINE [Suspect]
     Active Substance: SERTRALINE HYDROCHLORIDE
     Indication: DEMENTIA
     Dosage: UNK
     Route: 048
     Dates: start: 201608, end: 20180505
  5. LEVODOPA/CARBIDOPA [Suspect]
     Active Substance: CARBIDOPA\LEVODOPA
     Dosage: 1 DF, PM
     Route: 048
     Dates: start: 2012, end: 20180503
  6. CLOZARIL [Suspect]
     Active Substance: CLOZAPINE
     Indication: PSYCHOTIC DISORDER
  7. CLOZARIL [Suspect]
     Active Substance: CLOZAPINE
     Indication: DEMENTIA WITH LEWY BODIES
  8. DONEPEZIL. [Suspect]
     Active Substance: DONEPEZIL
     Indication: DEMENTIA
     Dosage: 5 MG, BID
     Route: 048
     Dates: start: 201608, end: 20180505
  9. FLUDROCORTISONE [Suspect]
     Active Substance: FLUDROCORTISONE
     Indication: ORTHOSTATIC HYPOTENSION
     Dosage: 0.2 MG, MONTHLY
     Route: 048
     Dates: start: 2017, end: 20180503
  10. CLONAZEPAM. [Suspect]
     Active Substance: CLONAZEPAM
     Indication: DEMENTIA
     Dosage: 0.5 MG, 5XD
     Route: 048
     Dates: start: 201608, end: 20180505
  11. CARBIDOPA/LEVODOPA [Suspect]
     Active Substance: CARBIDOPA\LEVODOPA
     Indication: PARKINSON^S DISEASE
     Dosage: 1 DF, 5XD
     Route: 048
     Dates: start: 2011, end: 20180505
  12. SERTRALINE [Suspect]
     Active Substance: SERTRALINE HYDROCHLORIDE
     Indication: ANXIETY
     Dosage: 2 DF, AM
     Route: 048
     Dates: start: 201608, end: 20180503
  13. CLONAZEPAM. [Suspect]
     Active Substance: CLONAZEPAM
     Indication: ANXIETY
  14. LITHIUM. [Suspect]
     Active Substance: LITHIUM
     Indication: DEMENTIA
     Dosage: 1 DF, PM
     Route: 048
     Dates: start: 201608, end: 20180505
  15. LITHIUM. [Suspect]
     Active Substance: LITHIUM
     Indication: DEPRESSION
  16. LEVODOPA/CARBIDOPA [Suspect]
     Active Substance: CARBIDOPA\LEVODOPA
     Indication: PARKINSON^S DISEASE
     Dosage: UNK UNK, PM
     Route: 048
     Dates: start: 2011, end: 20180505
  17. FLUDROCORTISONE [Suspect]
     Active Substance: FLUDROCORTISONE
     Indication: HYPOTENSION
     Dosage: UNK
     Route: 048
     Dates: start: 201801, end: 20180505
  18. CODEINE PHOSPHATE [Concomitant]
     Active Substance: CODEINE PHOSPHATE
     Indication: PAIN
     Dosage: UNK UNK, PRN
     Route: 048
     Dates: start: 2016, end: 20180505

REACTIONS (7)
  - Terminal state [Fatal]
  - Parkinson^s disease [Fatal]
  - Quality of life decreased [None]
  - Immobile [Unknown]
  - Dementia with Lewy bodies [Fatal]
  - Cognitive disorder [None]
  - Pneumonia [Fatal]

NARRATIVE: CASE EVENT DATE: 2013
